FAERS Safety Report 4788493-1 (Version None)
Quarter: 2005Q4

REPORT INFORMATION
  Report Type: 
  Country: None (occurrence: None)
  Receive Date: 20051005
  Receipt Date: 20051005
  Transmission Date: 20060501
  Serious: Yes (Hospitalization)
  Sender: FDA-Public Use
  Company Number: None

PATIENT
  Age: 20 Year
  Sex: Male

DRUGS (3)
  1. CHLORPROMAZINE HCL [Suspect]
     Indication: DEPRESSION
     Dosage: 150MG  PO QD
     Route: 048
  2. CLONAZEPAM [Suspect]
     Dosage: 2MG PO QD
     Route: 048
  3. ESCITALOPRAM OXALATE [Concomitant]

REACTIONS (4)
  - INTENTIONAL DRUG MISUSE [None]
  - LETHARGY [None]
  - MULTIPLE DRUG OVERDOSE [None]
  - SLUGGISHNESS [None]
